FAERS Safety Report 17602495 (Version 1)
Quarter: 2020Q1

REPORT INFORMATION
  Report Type: Spontaneous
  Country: US (occurrence: US)
  Receive Date: 20200330
  Receipt Date: 20200330
  Transmission Date: 20200409
  Serious: Yes (Life-Threatening)
  Sender: FDA-Public Use
  Company Number: US-SEPTODONT-201905232

PATIENT
  Age: 2 Day
  Sex: Female
  Weight: 2.54 kg

DRUGS (1)
  1. LIDOCAINE. [Suspect]
     Active Substance: LIDOCAINE
     Indication: DENTAL LOCAL ANAESTHESIA

REACTIONS (2)
  - Methaemoglobinaemia [Recovered/Resolved]
  - Off label use [Recovered/Resolved]
